FAERS Safety Report 13260551 (Version 1)
Quarter: 2017Q1

REPORT INFORMATION
  Report Type: Spontaneous
  Country: US (occurrence: US)
  Receive Date: 20170221
  Receipt Date: 20170221
  Transmission Date: 20170428
  Serious: Yes (Other)
  Sender: FDA-Public Use
  Company Number: None

PATIENT
  Age: 68 Year
  Sex: Male

DRUGS (11)
  1. AMLODIPINE [Concomitant]
     Active Substance: AMLODIPINE BESYLATE
  2. INSULIN DETEMIR [Suspect]
     Active Substance: INSULIN DETEMIR
     Indication: DIABETES MELLITUS
     Route: 058
     Dates: start: 20161126, end: 20161129
  3. ASPIRIN. [Concomitant]
     Active Substance: ASPIRIN
  4. CLOPIDOGREL [Concomitant]
     Active Substance: CLOPIDOGREL BISULFATE
  5. PANTOPRAZOLE [Concomitant]
     Active Substance: PANTOPRAZOLE SODIUM
  6. SEVELAMER [Concomitant]
     Active Substance: SEVELAMER
  7. CARVEDILOL. [Concomitant]
     Active Substance: CARVEDILOL
  8. IPRA/ALBUT [Concomitant]
  9. HEPARIN [Concomitant]
     Active Substance: HEPARIN SODIUM
  10. LOSARTAN. [Concomitant]
     Active Substance: LOSARTAN
  11. GUAIFENESIN. [Concomitant]
     Active Substance: GUAIFENESIN

REACTIONS (2)
  - Blood glucose decreased [None]
  - Blood glucose increased [None]

NARRATIVE: CASE EVENT DATE: 20161129
